FAERS Safety Report 23822066 (Version 1)
Quarter: 2024Q2

REPORT INFORMATION
  Report Type: Spontaneous
  Country: US (occurrence: US)
  Receive Date: 20240506
  Receipt Date: 20240506
  Transmission Date: 20240715
  Serious: Yes (Hospitalization)
  Sender: FDA-Public Use
  Company Number: US-SA-SAC20240501000250

PATIENT
  Age: 71 Year
  Sex: Female

DRUGS (3)
  1. KEVZARA [Suspect]
     Active Substance: SARILUMAB
     Indication: Osteoporosis
     Dosage: 200 MG, QOW
     Route: 058
     Dates: start: 202312
  2. KEVZARA [Suspect]
     Active Substance: SARILUMAB
     Indication: Giant cell arteritis
  3. KEVZARA [Suspect]
     Active Substance: SARILUMAB
     Indication: Polymyalgia rheumatica

REACTIONS (3)
  - Chest pain [Unknown]
  - Oesophageal spasm [Unknown]
  - Product use in unapproved indication [Unknown]

NARRATIVE: CASE EVENT DATE: 20231201
